FAERS Safety Report 6147918-X (Version None)
Quarter: 2009Q2

REPORT INFORMATION
  Report Type: 
  Country: None (occurrence: None)
  Receive Date: 20090408
  Receipt Date: 20090402
  Transmission Date: 20091009
  Serious: Yes (Other)
  Sender: FDA-Public Use
  Company Number: JP-NOVOPROD-285898

PATIENT
  Age: 62 Year
  Sex: Male
  Weight: 83 kg

DRUGS (3)
  1. LEVEMIR [Suspect]
     Indication: TYPE 2 DIABETES MELLITUS
     Dosage: 10 IU, QD
     Route: 058
     Dates: start: 20090101, end: 20090226
  2. NOVORAPID CHU FLEXPEN [Concomitant]
     Dosage: 17 IU, QD
     Route: 058
     Dates: start: 20080501
  3. METFORMIN HCL [Concomitant]
     Dosage: 750 MG, QD
     Dates: start: 20080801, end: 20090226

REACTIONS (1)
  - HEPATITIS A [None]
